FAERS Safety Report 20163995 (Version 4)
Quarter: 2022Q1

REPORT INFORMATION
  Report Type: Report from Study
  Country: US (occurrence: US)
  Receive Date: 20211209
  Receipt Date: 20220107
  Transmission Date: 20220423
  Serious: Yes (Death, Other)
  Sender: FDA-Public Use
  Company Number: US-GLAXOSMITHKLINE-US2021AMR052847

PATIENT
  Age: 82 Year
  Sex: Female

DRUGS (1)
  1. BELANTAMAB MAFODOTIN [Suspect]
     Active Substance: BELANTAMAB MAFODOTIN
     Indication: Product used for unknown indication
     Dosage: UNK
     Dates: start: 20210105

REACTIONS (9)
  - Death [Fatal]
  - Plasma cell myeloma [Unknown]
  - Visual acuity reduced [Unknown]
  - Corneal oedema [Unknown]
  - Keratopathy [Unknown]
  - Dry eye [Unknown]
  - Cognitive disorder [Unknown]
  - Maculopathy [Unknown]
  - Visual impairment [Unknown]

NARRATIVE: CASE EVENT DATE: 20210222
